FAERS Safety Report 8431245-1 (Version None)
Quarter: 2012Q2

REPORT INFORMATION
  Report Type: 
  Country: None (occurrence: None)
  Receive Date: 20120613
  Receipt Date: 20120531
  Transmission Date: 20120825
  Serious: Yes (Hospitalization)
  Sender: FDA-Public Use
  Company Number: FR-AMGEN-FRASP2012013852

PATIENT
  Age: 62 Year
  Sex: Female

DRUGS (9)
  1. REPAGLINIDE [Concomitant]
     Indication: DIABETES MELLITUS
     Dosage: UNK
     Route: 048
  2. LASIX [Concomitant]
     Indication: HYPERTENSION
     Dosage: UNK
     Route: 048
  3. ALLOPURINOL [Concomitant]
     Dosage: UNK
  4. DAFLON                             /00426001/ [Concomitant]
     Dosage: UNK
  5. MEDIATENSYL                        /00631801/ [Concomitant]
     Dosage: UNK
     Route: 048
  6. ENBREL [Suspect]
     Indication: PSORIASIS
     Dosage: 50 MG, WEEKLY
     Dates: start: 20100101, end: 20110701
  7. ASPIRIN [Concomitant]
     Dosage: UNK
     Route: 048
  8. ATORVASTATIN [Concomitant]
     Dosage: UNK
  9. ATACAND [Concomitant]
     Dosage: UNK
     Route: 048

REACTIONS (2)
  - HERNIAL EVENTRATION [None]
  - POSTOPERATIVE ABSCESS [None]
